FAERS Safety Report 21140022 (Version 1)
Quarter: 2022Q3

REPORT INFORMATION
  Report Type: Spontaneous
  Country: GB (occurrence: GB)
  Receive Date: 20220728
  Receipt Date: 20220728
  Transmission Date: 20221027
  Serious: Yes (Hospitalization, Other)
  Sender: FDA-Public Use
  Company Number: None

PATIENT
  Age: 55 Year
  Sex: Male

DRUGS (21)
  1. OMEPRAZOLE [Suspect]
     Active Substance: OMEPRAZOLE
     Indication: Dyspepsia
     Route: 065
     Dates: start: 20140116
  2. CARVEDILOL [Suspect]
     Active Substance: CARVEDILOL
     Indication: Angina pectoris
     Dosage: UNIT DOSE: 25 MG, FREQUENCY TIME : 1 DAY
     Dates: start: 20110616
  3. FUROSEMIDE [Suspect]
     Active Substance: FUROSEMIDE
     Indication: Pulmonary oedema
     Dosage: UNIT DOSE: 40 MG, FREQUENCY TIME : 1 DAY
     Route: 065
     Dates: start: 20160402
  4. FUROSEMIDE [Suspect]
     Active Substance: FUROSEMIDE
     Indication: Lung disorder
     Dosage: UNIT DOSE: 40 MG, FREQUENCY TIME : 1 DAY
     Dates: start: 20160402
  5. FUROSEMIDE [Suspect]
     Active Substance: FUROSEMIDE
     Indication: Left ventricular dysfunction
     Dosage: UNIT DOSE: 40 MG, FREQUENCY TIME : 1 DAY
     Dates: start: 20160402
  6. ISOSORBIDE MONONITRATE [Suspect]
     Active Substance: ISOSORBIDE MONONITRATE
     Indication: Angina pectoris
     Dosage: ORAL FORMULATION: DURULE, UNIT DOSE : 10 MG, FREQUENCY TIME : 1 DAY
     Dates: start: 20160205
  7. IVABRADINE [Suspect]
     Active Substance: IVABRADINE
     Indication: Angina pectoris
     Dosage: UNIT DOSE: 5 MG, FREQUENCY TIME : 1 DAY
     Dates: start: 20150211
  8. RAMIPRIL [Suspect]
     Active Substance: RAMIPRIL
     Indication: Cardiac failure
     Dosage: UNIT DOSE: 1.25 MG , FREQUENCY TIME : 1 DAY, DURATION : 1051 DAYS
     Dates: start: 20130813, end: 20160629
  9. QUETIAPINE FUMARATE [Suspect]
     Active Substance: QUETIAPINE FUMARATE
     Indication: Depression
     Dates: start: 20150826
  10. BOCOCIZUMAB [Suspect]
     Active Substance: BOCOCIZUMAB
     Indication: Cardiovascular disorder
     Dosage: FREQUENCY- EVERY 2 WEEKS, UNIT DOSE : 150 MG, DURATION : 420 DAYS
     Dates: start: 20150908, end: 20161101
  11. ACETAMINOPHEN [Concomitant]
     Active Substance: ACETAMINOPHEN
     Indication: Pain in extremity
     Dates: start: 20110616
  12. NITROGLYCERIN [Concomitant]
     Active Substance: NITROGLYCERIN
     Indication: Pain
  13. ATORVASTATIN [Concomitant]
     Active Substance: ATORVASTATIN
     Indication: Cardiovascular disorder
     Dates: start: 20130708
  14. METHOTREXATE [Concomitant]
     Active Substance: METHOTREXATE
     Indication: Psoriasis
  15. ENTRESTO [Concomitant]
     Active Substance: SACUBITRIL\VALSARTAN
     Indication: Product used for unknown indication
     Dosage: 49/51
     Dates: start: 20160701
  16. FOLIC ACID [Concomitant]
     Active Substance: FOLIC ACID
     Indication: Anaemia
     Dates: start: 20131211
  17. SERTRALINE HYDROCHLORIDE [Concomitant]
     Active Substance: SERTRALINE HYDROCHLORIDE
     Indication: Depression
     Dates: start: 20110816
  18. ASPIRIN [Concomitant]
     Active Substance: ASPIRIN
     Indication: Cardiovascular disorder
     Dates: start: 20130708
  19. CODEINE PHOSPHATE [Concomitant]
     Active Substance: CODEINE PHOSPHATE
     Indication: Product used for unknown indication
  20. BETAMETHASONE DIPROPIONATE\CLOTRIMAZOLE [Concomitant]
     Active Substance: BETAMETHASONE DIPROPIONATE\CLOTRIMAZOLE
     Indication: Psoriasis
     Dates: start: 20150626
  21. ACETAMINOPHEN\CODEINE PHOSPHATE [Concomitant]
     Active Substance: ACETAMINOPHEN\CODEINE PHOSPHATE
     Indication: Product used for unknown indication
     Dates: start: 20110616

REACTIONS (11)
  - Anaemia [Unknown]
  - Presyncope [Unknown]
  - Ventricular dysfunction [Unknown]
  - Fluid retention [Unknown]
  - Angina pectoris [Unknown]
  - Pulmonary oedema [Unknown]
  - Psoriasis [Unknown]
  - Oedema peripheral [Not Recovered/Not Resolved]
  - Hypotension [Recovered/Resolved]
  - Contusion [Recovered/Resolved]
  - Cardiac failure [Unknown]

NARRATIVE: CASE EVENT DATE: 20130919
